FAERS Safety Report 4356615-2 (Version None)
Quarter: 2004Q2

REPORT INFORMATION
  Report Type: 
  Country: None (occurrence: None)
  Receive Date: 20040507
  Receipt Date: 20040416
  Transmission Date: 20050107
  Serious: Yes (Hospitalization)
  Sender: FDA-Public Use
  Company Number: FR_040403937

PATIENT
  Age: 71 Year
  Sex: Male
  Weight: 81 kg

DRUGS (3)
  1. PERGOLIDE MESYLATE [Suspect]
     Indication: PARKINSON'S DISEASE
     Dosage: 3 MG/1 DAY
     Dates: start: 20001215
  2. MODOPAR LP 125 [Concomitant]
  3. SELEGILINE HCL [Concomitant]

REACTIONS (2)
  - CORONARY ARTERY OCCLUSION [None]
  - MYOCARDIAL ISCHAEMIA [None]
